FAERS Safety Report 7293481-X (Version None)
Quarter: 2011Q1

REPORT INFORMATION
  Report Type: 
  Country: None (occurrence: None)
  Receive Date: 20110215
  Receipt Date: 20110201
  Transmission Date: 20110831
  Serious: Yes (Hospitalization)
  Sender: FDA-Public Use
  Company Number: FI-CELGENEUS-055-50794-11020202

PATIENT
  Sex: Male

DRUGS (5)
  1. EMCONCOR [Concomitant]
     Route: 048
     Dates: start: 20101208
  2. VIDAZA [Suspect]
     Indication: MYELODYSPLASTIC SYNDROME
     Route: 058
     Dates: start: 20101220, end: 20101223
  3. KEFEXIN [Concomitant]
     Route: 048
     Dates: start: 20101214, end: 20101223
  4. FURESIS [Concomitant]
     Route: 048
     Dates: start: 20101207
  5. ALLOPURINOL [Concomitant]
     Route: 048

REACTIONS (1)
  - ORGANISING PNEUMONIA [None]
